FAERS Safety Report 6162470-0 (Version None)
Quarter: 2009Q2

REPORT INFORMATION
  Report Type: 
  Country: None (occurrence: None)
  Receive Date: 20090421
  Receipt Date: 20090415
  Transmission Date: 20091009
  Serious: Yes (Hospitalization)
  Sender: FDA-Public Use
  Company Number: PHHY2009MX14541

PATIENT
  Age: 74 Year
  Sex: Female

DRUGS (1)
  1. RASILEZ [Suspect]
     Indication: HYPERTENSION
     Dosage: 150 MG, QD
     Dates: start: 20090101

REACTIONS (4)
  - ANAEMIA [None]
  - GASTROINTESTINAL DISORDER [None]
  - HYPOTENSION [None]
  - RECTAL HAEMORRHAGE [None]
